FAERS Safety Report 5816805-6 (Version None)
Quarter: 2008Q3

REPORT INFORMATION
  Report Type: 
  Country: None (occurrence: None)
  Receive Date: 20080721
  Receipt Date: 20080711
  Transmission Date: 20090109
  Serious: Yes (Hospitalization)
  Sender: FDA-Public Use
  Company Number: JP-ABBOTT-08P-087-0464029-00

PATIENT
  Age: 65 Year
  Sex: Male

DRUGS (2)
  1. LEUPROLIDE ACETATE [Suspect]
     Indication: PROSTATE CANCER STAGE II
     Route: 058
     Dates: start: 20060706
  2. FLUTAMIDE [Concomitant]
     Indication: PROSTATE CANCER STAGE II
     Route: 048
     Dates: end: 20080209

REACTIONS (2)
  - CHOLECYSTITIS [None]
  - ILEUS [None]
